FAERS Safety Report 20467162 (Version 1)
Quarter: 2022Q1

REPORT INFORMATION
  Report Type: Spontaneous
  Country: NL (occurrence: NL)
  Receive Date: 20220214
  Receipt Date: 20220214
  Transmission Date: 20220423
  Serious: Yes (Other)
  Sender: FDA-Public Use
  Company Number: None

PATIENT
  Age: 60 Year
  Sex: Female
  Weight: 67 kg

DRUGS (4)
  1. TRAMADOL [Suspect]
     Active Substance: TRAMADOL
     Indication: Analgesic therapy
     Dosage: 1 CAP AND AFTER 1 HOUR ANOTHER CAP (ACCORDING TO PRESCRIPTION; UNIT DOSE: 100MG; THERAPY END DATE: A
     Dates: start: 20220118
  2. PANTOPRAZOLE SODIUM [Concomitant]
     Active Substance: PANTOPRAZOLE SODIUM
     Dosage: 40 MG; THERAPY START AND END DATE: ASKU; PANTOPRAZOL TABLET MSR 20MG / MAAGZUURTABLET PANTOPRAZOL HT
  3. ZOPICLONE [Concomitant]
     Active Substance: ZOPICLONE
     Dosage: TABLET, 3,75 MG (MILLIGRAM), BRAND NAME NOT SPECIFIED; THERAPY START AND END DATE: ASKU
  4. NAPROXEN [Concomitant]
     Active Substance: NAPROXEN
     Dosage: 500 MG (MILLIGRAM); THERAPY START AND END DATE: ASKU; NAPROXEN TABLET MSR 500MG / BRAND NAME NOT SPE

REACTIONS (2)
  - Bradycardia [Recovered/Resolved]
  - Dizziness [Recovered/Resolved]

NARRATIVE: CASE EVENT DATE: 20220119
